FAERS Safety Report 5295486-7 (Version None)
Quarter: 2007Q2

REPORT INFORMATION
  Report Type: 
  Country: None (occurrence: None)
  Receive Date: 20070406
  Receipt Date: 20070327
  Transmission Date: 20071010
  Serious: Yes (Other)
  Sender: FDA-Public Use
  Company Number: 238040

PATIENT
  Age: 53 Year
  Sex: Female
  Weight: 99.8 kg

DRUGS (2)
  1. AVASTIN [Suspect]
     Indication: MACULAR DEGENERATION
     Dosage: 1.25 MG, QW, INTRAVITREAL
     Route: 050
     Dates: start: 20051101
  2. VISUDYNE [Suspect]
     Indication: MACULAR DEGENERATION
     Dates: start: 20040922

REACTIONS (7)
  - CATARACT OPERATION [None]
  - HYPERSENSITIVITY [None]
  - IRITIS [None]
  - LACRIMATION INCREASED [None]
  - OCULAR HYPERAEMIA [None]
  - UNEVALUABLE EVENT [None]
  - VISUAL ACUITY REDUCED [None]
